FAERS Safety Report 6382937-X (Version None)
Quarter: 2009Q3

REPORT INFORMATION
  Report Type: 
  Country: None (occurrence: None)
  Receive Date: 20090930
  Receipt Date: 20090916
  Transmission Date: 20100115
  Serious: Yes (Hospitalization)
  Sender: FDA-Public Use
  Company Number: ZA-PFIZER INC-2009269483

PATIENT
  Age: 42 Year

DRUGS (2)
  1. SUNITINIB MALATE [Suspect]
     Indication: HEPATIC NEOPLASM MALIGNANT RECURRENT
     Dosage: 37.5 MG, 1X/DAY
     Route: 048
     Dates: start: 20090624, end: 20090914
  2. NIFEDIPINE [Concomitant]
     Indication: HYPERTENSION
     Dosage: 1, 1X/DAY
     Route: 048
     Dates: start: 20090708

REACTIONS (1)
  - ASCITES [None]
